FAERS Safety Report 7700273-3 (Version None)
Quarter: 2011Q3

REPORT INFORMATION
  Report Type: 
  Country: None (occurrence: None)
  Receive Date: 20110822
  Receipt Date: 20110815
  Transmission Date: 20111222
  Serious: Yes (Hospitalization, Other)
  Sender: FDA-Public Use
  Company Number: US-TEVA-296593USA

PATIENT
  Age: 13 Month
  Sex: Male

DRUGS (1)
  1. DIPHENHYDRAMINE HCL [Suspect]

REACTIONS (3)
  - TACHYCARDIA [None]
  - STATUS EPILEPTICUS [None]
  - OVERDOSE [None]
